FAERS Safety Report 5108929-6 (Version None)
Quarter: 2006Q3

REPORT INFORMATION
  Report Type: 
  Country: None (occurrence: None)
  Receive Date: 20060920
  Receipt Date: 20060908
  Transmission Date: 20061208
  Serious: Yes (Hospitalization)
  Sender: FDA-Public Use
  Company Number: US-JNJFOC-20060902284

PATIENT
  Sex: Male
  Weight: 78 kg

DRUGS (3)
  1. CONCERTA [Suspect]
     Indication: ATTENTION DEFICIT/HYPERACTIVITY DISORDER
     Route: 048
  2. CREATINE [Concomitant]
  3. ZYRTEC [Concomitant]

REACTIONS (15)
  - ATRIAL FIBRILLATION [None]
  - BLOOD PRESSURE DIASTOLIC DECREASED [None]
  - CARDIAC FAILURE CONGESTIVE [None]
  - CARDIOMYOPATHY [None]
  - DRUG ABUSER [None]
  - EJECTION FRACTION DECREASED [None]
  - FALL [None]
  - HEART RATE INCREASED [None]
  - HYPOMAGNESAEMIA [None]
  - HYPOXIA [None]
  - LOSS OF CONSCIOUSNESS [None]
  - METABOLIC ACIDOSIS [None]
  - PULMONARY CONGESTION [None]
  - RESPIRATORY ACIDOSIS [None]
  - VENTRICULAR HYPOKINESIA [None]
